FAERS Safety Report 5235883-9 (Version None)
Quarter: 2007Q1

REPORT INFORMATION
  Report Type: 
  Country: None (occurrence: None)
  Receive Date: 20061208
  Receipt Date: 20060720
  Transmission Date: 20070707
  Serious: Yes (Other)
  Sender: FDA-Public Use
  Company Number: 2006UW13451

PATIENT
  Age: 72 Year
  Sex: Female
  Weight: 80.7403 kg

DRUGS (5)
  1. CRESTOR [Suspect]
     Dosage: 10 MG PO
     Route: 048
     Dates: start: 20060503, end: 20060706
  2. SIMVASTATIN [Suspect]
     Dosage: 40 MG
     Dates: start: 20020101, end: 20060503
  3. ATENOLOL [Concomitant]
  4. LISINOPRIL [Concomitant]
  5. SALSALATE [Concomitant]

REACTIONS (3)
  - MICTURITION URGENCY [None]
  - MYALGIA [None]
  - POLLAKIURIA [None]
